FAERS Safety Report 7880529-4 (Version None)
Quarter: 2011Q4

REPORT INFORMATION
  Report Type: 
  Country: None (occurrence: None)
  Receive Date: 20111101
  Receipt Date: 20111031
  Transmission Date: 20120403
  Serious: Yes (Death, Hospitalization, Other)
  Sender: FDA-Public Use
  Company Number: PHFR2011GB01808

PATIENT
  Sex: Male

DRUGS (1)
  1. CLOZARIL [Suspect]
     Indication: SCHIZOPHRENIA
     Route: 048
     Dates: start: 20021103

REACTIONS (5)
  - DEATH [None]
  - PICA [None]
  - LEARNING DISABILITY [None]
  - MENTAL DISORDER [None]
  - SCHIZOPHRENIA [None]
